FAERS Safety Report 7921860-3 (Version None)
Quarter: 2011Q4

REPORT INFORMATION
  Report Type: 
  Country: None (occurrence: None)
  Receive Date: 20111117
  Receipt Date: 20111110
  Transmission Date: 20120403
  Serious: Yes (Hospitalization, Other)
  Sender: FDA-Public Use
  Company Number: US-ROXANE LABORATORIES, INC.-2011-RO-01628RO

PATIENT
  Age: 9 Year
  Sex: Female
  Weight: 17 kg

DRUGS (7)
  1. AMLODIPINE [Suspect]
     Indication: HYPERTENSION
     Dosage: 12.5 MG
  2. ATORVASTATIN [Suspect]
     Dosage: 10 MG
  3. EPOGEN [Suspect]
  4. AZATHIOPRINE [Suspect]
     Dosage: 50 MG
  5. LABETALOL HCL [Suspect]
     Dosage: 200 MG
  6. CALCITRIOL [Suspect]
     Dosage: 0.25 MCG
  7. BUDESONIDE [Suspect]
     Dosage: 3 MG

REACTIONS (5)
  - WEIGHT GAIN POOR [None]
  - GINGIVAL HYPERPLASIA [None]
  - DRUG INEFFECTIVE [None]
  - BLOOD POTASSIUM DECREASED [None]
  - MALNUTRITION [None]
